FAERS Safety Report 5562838-7 (Version None)
Quarter: 2007Q4

REPORT INFORMATION
  Report Type: 
  Country: None (occurrence: None)
  Receive Date: 20071212
  Receipt Date: 20071130
  Transmission Date: 20080405
  Serious: Yes (Hospitalization, Other)
  Sender: FDA-Public Use
  Company Number: 2007US002871

PATIENT
  Age: 14 Year
  Sex: Male

DRUGS (9)
  1. PROGRAF [Suspect]
     Indication: HEART TRANSPLANT
     Dosage: 1 MG, BID, OTHER; 2.5 MG, OTHER, OTHER; 3MG, OTHER, OTHER; 2 MG, TID, ORAL
     Route: 050
     Dates: start: 20071108
  2. LASIX [Concomitant]
  3. GANCICLOVIR [Concomitant]
  4. ZANTAC 150 [Concomitant]
  5. SOLU-MEDROL [Concomitant]
  6. VANCOMYCIN [Concomitant]
  7. CELLICEPT (MYCOPHENOLATE MOFETIL) [Concomitant]
  8. CYTOVENE [Concomitant]
  9. CEFTRIAXONE [Concomitant]

REACTIONS (6)
  - APNOEA [None]
  - CONVULSION [None]
  - HEADACHE [None]
  - INCORRECT ROUTE OF DRUG ADMINISTRATION [None]
  - INTRACRANIAL PRESSURE INCREASED [None]
  - STROKE VOLUME INCREASED [None]
